FAERS Safety Report 12889460 (Version 3)
Quarter: 2016Q4

REPORT INFORMATION
  Report Type: Report from Study
  Country: GB (occurrence: GB)
  Receive Date: 20161027
  Receipt Date: 20161123
  Transmission Date: 20170207
  Serious: Yes (Hospitalization)
  Sender: FDA-Public Use
  Company Number: GB-PFIZER INC-2016486236

PATIENT
  Age: 64 Year
  Sex: Male
  Weight: 84.8 kg

DRUGS (11)
  1. CRIZOTINIB [Suspect]
     Active Substance: CRIZOTINIB
     Indication: METASTATIC RENAL CELL CARCINOMA
     Dosage: 250 MG, 2X/DAY (BD)
     Route: 048
     Dates: start: 20161006, end: 20161014
  2. METOCLOPRAMIDE. [Concomitant]
     Active Substance: METOCLOPRAMIDE
     Indication: NAUSEA
     Dosage: 10 MG, AS NEEDED
     Route: 048
     Dates: start: 20160713
  3. RAMIPRIL. [Concomitant]
     Active Substance: RAMIPRIL
     Indication: HYPERTENSION
     Dosage: 5 MG, 1X/DAY
     Route: 048
     Dates: start: 20060101
  4. SIMVASTATIN. [Concomitant]
     Active Substance: SIMVASTATIN
     Indication: HYPERCHOLESTEROLAEMIA
     Dosage: 20 MG, ONCE DAILY
     Route: 048
     Dates: start: 20060101
  5. DALTEPARIN [Concomitant]
     Active Substance: DALTEPARIN
     Indication: PULMONARY EMBOLISM
     Dosage: 18000 IU, 1X/DAY
     Route: 058
     Dates: start: 20160715
  6. LOPERAMIDE [Concomitant]
     Active Substance: LOPERAMIDE
     Indication: DIARRHOEA
     Dosage: 2 MG, AS NEEDED
     Route: 048
     Dates: start: 20160729
  7. CALMURID CREAM [Concomitant]
     Indication: PALMAR-PLANTAR ERYTHRODYSAESTHESIA SYNDROME
     Dosage: 1 DF, AS NEEDED
     Route: 061
     Dates: start: 20161004
  8. COCODAMOL [Concomitant]
     Active Substance: ACETAMINOPHEN\CODEINE PHOSPHATE
     Indication: ARTHRALGIA
     Dosage: 2 TABLETS (30/500), AS NEEDED (PRN)
     Route: 048
     Dates: start: 20160801
  9. SENNA /00571901/ [Concomitant]
     Indication: CONSTIPATION
     Dosage: 7.5 MG, 1X/DAY (ON NIGHT, ON)
     Route: 048
     Dates: start: 20160910
  10. AXITINIB [Suspect]
     Active Substance: AXITINIB
     Indication: METASTATIC RENAL CELL CARCINOMA
     Dosage: 5 MG, 2X/DAY
     Route: 048
     Dates: start: 20161006, end: 20161014
  11. AMLODIPINE [Concomitant]
     Active Substance: AMLODIPINE BESYLATE
     Indication: HYPERTENSION
     Dosage: 5 MG, ONCE DAILY
     Route: 048
     Dates: start: 20060101

REACTIONS (1)
  - Acute kidney injury [Recovered/Resolved]

NARRATIVE: CASE EVENT DATE: 20161015
